FAERS Safety Report 9904657 (Version 2)
Quarter: 2014Q1

REPORT INFORMATION
  Report Type: Spontaneous
  Country: US (occurrence: US)
  Receive Date: 20140218
  Receipt Date: 20140218
  Transmission Date: 20141002
  Serious: Yes (Other)
  Sender: FDA-Public Use
  Company Number: US-GE HEALTHCARE MEDICAL DIAGNOSTICS-OSCN-PR-0803S-0145

PATIENT
  Age: 52 Year
  Sex: Male

DRUGS (3)
  1. OMNISCAN [Suspect]
     Indication: PRODUCT USED FOR UNKNOWN INDICATION
     Dates: start: 20051028, end: 20051028
  2. OMNISCAN [Suspect]
     Dates: start: 20051221, end: 20051221
  3. OMNISCAN [Suspect]
     Dates: start: 20060203, end: 20060203

REACTIONS (1)
  - Nephrogenic systemic fibrosis [Not Recovered/Not Resolved]
